FAERS Safety Report 5683042-8 (Version None)
Quarter: 2008Q1

REPORT INFORMATION
  Report Type: 
  Country: None (occurrence: None)
  Receive Date: 20080327
  Receipt Date: 20080324
  Transmission Date: 20080703
  Serious: Yes (Hospitalization, Other)
  Sender: FDA-Public Use
  Company Number: PHEH2005US05468

PATIENT
  Age: 52 Year
  Sex: Female
  Weight: 70.294 kg

DRUGS (10)
  1. PROVERA [Suspect]
     Indication: MENOPAUSAL SYMPTOMS
     Dosage: 5 MG, QD
     Dates: end: 20010301
  2. ESTRACE [Suspect]
     Indication: MENOPAUSAL SYMPTOMS
     Dosage: UNK, UNK
     Dates: start: 19970101, end: 20010301
  3. ESTRADERM [Suspect]
     Indication: MENOPAUSAL SYMPTOMS
     Dosage: 0.5 MG, QD
     Dates: end: 20010301
  4. PREMARIN [Suspect]
     Indication: MENOPAUSAL SYMPTOMS
     Dosage: UNK, 5 DAYS MONTHLY
     Dates: end: 20010301
  5. VIVELLE [Suspect]
     Indication: MENOPAUSAL SYMPTOMS
     Dates: end: 20010301
  6. SYNTHROID [Concomitant]
  7. PREVACID [Concomitant]
     Dosage: 15 MG, QD
     Route: 048
  8. PAXIL [Concomitant]
     Dosage: 10 MG, QD
     Route: 048
  9. DICYCLOMINE [Concomitant]
  10. ESTROGENS CONJUGATED [Suspect]
     Dosage: 0.5 MG, BID
     Dates: end: 20010301

REACTIONS (17)
  - ABDOMINAL DISTENSION [None]
  - ABDOMINAL PAIN LOWER [None]
  - BLEPHARAL PAPILLOMA [None]
  - BREAST CANCER [None]
  - BREAST FIBROSIS [None]
  - HAEMORRHOID OPERATION [None]
  - HAEMORRHOIDS [None]
  - ILEAL ULCER [None]
  - IRRITABLE BOWEL SYNDROME [None]
  - LIMB INJURY [None]
  - MALIGNANT BREAST LUMP REMOVAL [None]
  - MAMMOGRAM ABNORMAL [None]
  - PAINFUL DEFAECATION [None]
  - PROCTALGIA [None]
  - RECTAL HAEMORRHAGE [None]
  - SKIN NEOPLASM EXCISION [None]
  - SURGERY [None]
